FAERS Safety Report 6739303-4 (Version None)
Quarter: 2010Q2

REPORT INFORMATION
  Report Type: 
  Country: None (occurrence: None)
  Receive Date: 20100521
  Receipt Date: 20100506
  Transmission Date: 20101027
  Serious: Yes (Hospitalization)
  Sender: FDA-Public Use
  Company Number: 007768

PATIENT
  Sex: Female
  Weight: 68.1 kg

DRUGS (6)
  1. CERTOLIZUMAB PEGOL [Suspect]
     Indication: RHEUMATOID ARTHRITIS
     Dosage: (200 MG, 1X/2 WEEKS SUBCUTANEOUS)
     Route: 058
     Dates: start: 20091214, end: 20100222
  2. CERTOLIZUMAB PEGOL [Suspect]
     Indication: RHEUMATOID ARTHRITIS
     Dosage: (200 MG, 1X/2 WEEKS SUBCUTANEOUS)
     Route: 058
     Dates: start: 20100310
  3. METHOTREXATE [Concomitant]
  4. FOLIC ACID [Concomitant]
  5. PREMARIN [Concomitant]
  6. CALCIUM CARBONATE [Concomitant]

REACTIONS (2)
  - PNEUMONIA [None]
  - PULMONARY FIBROSIS [None]
